FAERS Safety Report 20590248 (Version 1)
Quarter: 2022Q1

REPORT INFORMATION
  Report Type: Spontaneous
  Country: DE (occurrence: DE)
  Receive Date: 20220314
  Receipt Date: 20220314
  Transmission Date: 20220424
  Serious: Yes (Congenital Anomaly)
  Sender: FDA-Public Use
  Company Number: DE-EMBRYOTOX-202010873

PATIENT
  Age: 6 Week
  Sex: Male
  Weight: 3.11 kg

DRUGS (17)
  1. CITALOPRAM [Suspect]
     Active Substance: CITALOPRAM HYDROBROMIDE
     Indication: Depression
     Dosage: UNK, (20 [MG/D (BIS 10) ])
     Route: 064
  2. PANTOPRAZOLE SODIUM [Concomitant]
     Active Substance: PANTOPRAZOLE SODIUM
     Indication: Dyspepsia
     Dosage: 20 MILLIGRAM, PRN, (20 [MG/D (BEI BEDARF) ])
     Route: 064
  3. SERTRALINE [Concomitant]
     Active Substance: SERTRALINE HYDROCHLORIDE
     Indication: Anxiety disorder
     Dosage: UNK, (50 [MG/D (BIS 25 MG/D) ])
     Route: 064
  4. LEVOTHYROXINE SODIUM [Concomitant]
     Active Substance: LEVOTHYROXINE SODIUM
     Indication: Hypothyroidism
     Dosage: UNK, (150 [?G/D (BIS 125) ])
     Route: 064
     Dates: start: 20200626, end: 20210403
  5. CHOLECALCIFEROL [Concomitant]
     Active Substance: CHOLECALCIFEROL
     Indication: Vitamin D deficiency
     Dosage: UNK, (2000 [IE/D (GELEGENTLICH) ]/ FROM TIME TO TIME)
     Route: 064
  6. HEPARIN [Concomitant]
     Active Substance: HEPARIN SODIUM
     Indication: Thrombosis prophylaxis
     Dosage: UNK
     Route: 064
  7. FOSFOMYCIN [Concomitant]
     Active Substance: FOSFOMYCIN
     Indication: Urinary tract infection
     Dosage: UNK
     Route: 064
  8. BETAMETHASONE [Concomitant]
     Active Substance: BETAMETHASONE
     Indication: Maternal therapy to enhance foetal lung maturity
     Dosage: 12 MILLIGRAM, QD, (12 [MG/D ])
     Route: 064
  9. Rennie [Concomitant]
     Indication: Dyspepsia
     Dosage: UNK
     Route: 064
  10. DIMENHYDRINATE [Concomitant]
     Active Substance: DIMENHYDRINATE
     Indication: Obstetrical procedure
     Dosage: UNK
     Route: 064
  11. AMOXICILLIN\CLAVULANATE POTASSIUM [Concomitant]
     Active Substance: AMOXICILLIN\CLAVULANATE POTASSIUM
     Indication: Bronchitis
     Dosage: UNK
     Route: 064
  12. BUTYLSCOPOLAMINE BROMIDE [Concomitant]
     Active Substance: BUTYLSCOPOLAMINE BROMIDE
     Indication: Labour pain
     Dosage: UNK
     Route: 064
  13. ACETYLCYSTEINE [Concomitant]
     Active Substance: ACETYLCYSTEINE
     Indication: Bronchitis
     Dosage: UNK
     Route: 064
  14. PROGESTERONE [Concomitant]
     Active Substance: PROGESTERONE
     Indication: Abortion threatened
     Dosage: 400 MILLIGRAM, QD, (400 [MG/D (2X200) ])
     Route: 064
  15. Hametum [Concomitant]
     Indication: Haemorrhoids
     Dosage: UNK
     Route: 064
  16. AMBROXOL HYDROCHLORIDE [Concomitant]
     Active Substance: AMBROXOL HYDROCHLORIDE
     Indication: Bronchitis
     Dosage: UNK
     Route: 064
  17. MOMETASONE [Concomitant]
     Active Substance: MOMETASONE
     Indication: Seasonal allergy
     Dosage: UNK
     Route: 064

REACTIONS (2)
  - Atrial septal defect [Unknown]
  - Foetal exposure during pregnancy [Recovered/Resolved]
